FAERS Safety Report 10902417 (Version 1)
Quarter: 2015Q1

REPORT INFORMATION
  Report Type: Spontaneous
  Country: CH (occurrence: CH)
  Receive Date: 20150310
  Receipt Date: 20150310
  Transmission Date: 20150721
  Serious: Yes (Other)
  Sender: FDA-Public Use
  Company Number: CH-ELI_LILLY_AND_COMPANY-CH201502009450

PATIENT
  Sex: Female

DRUGS (5)
  1. TEMESTA                            /00273201/ [Concomitant]
     Active Substance: LORAZEPAM
     Dosage: UNK, UNKNOWN
     Route: 065
  2. FLURAZEPAM [Concomitant]
     Active Substance: FLURAZEPAM\FLURAZEPAM HYDROCHLORIDE
     Dosage: UNK, UNKNOWN
     Route: 065
  3. ANTABUSE [Concomitant]
     Active Substance: DISULFIRAM
     Indication: ALCOHOLISM
     Dosage: UNK, UNKNOWN
     Route: 065
  4. DEPAKINE                           /00228501/ [Concomitant]
     Active Substance: VALPROIC ACID
     Dosage: 4 G, QD
     Route: 065
  5. ZYPREXA [Suspect]
     Active Substance: OLANZAPINE
     Indication: BIPOLAR I DISORDER
     Dosage: 30 MG, QD
     Route: 065
     Dates: start: 200902

REACTIONS (5)
  - Disorientation [Recovered/Resolved]
  - Cognitive disorder [Recovered/Resolved]
  - Overdose [Recovered/Resolved]
  - Disturbance in attention [Recovered/Resolved]
  - Dystonia [Unknown]

NARRATIVE: CASE EVENT DATE: 2011
